FAERS Safety Report 9034629 (Version 2)
Quarter: 2013Q3

REPORT INFORMATION
  Report Type: Spontaneous
  Country: US (occurrence: US)
  Receive Date: 20130128
  Receipt Date: 20130731
  Transmission Date: 20140515
  Serious: Yes (Death, Hospitalization)
  Sender: FDA-Public Use
  Company Number: US-GLAXOSMITHKLINE-A1008836A

PATIENT
  Age: 57 Year
  Sex: Male

DRUGS (22)
  1. ARIXTRA [Suspect]
     Indication: THROMBOSIS PROPHYLAXIS
     Dosage: 7.5MG PER DAY
     Route: 058
     Dates: start: 2011
  2. OXYCODONE HYDROCHLORIDE IMMEDIATE RELEASE [Concomitant]
  3. DUONEB [Concomitant]
  4. FOLIC ACID [Concomitant]
  5. MAGNESIUM [Concomitant]
  6. OMEPRAZOLE [Concomitant]
  7. CLEOCIN [Concomitant]
  8. HYDROCORTISONE [Concomitant]
  9. SYMBICORT [Concomitant]
  10. SPIRIVA [Concomitant]
  11. PREDNISONE [Concomitant]
  12. EMLA CREAM [Concomitant]
  13. MUCINEX DM [Concomitant]
  14. CENTRUM VITAMIN [Concomitant]
  15. TESSALON PEARLS [Concomitant]
  16. VIBRAMYCIN [Concomitant]
  17. GLUCOPHAGE [Concomitant]
  18. SODIUM SULAMYD [Concomitant]
  19. ONDANSETRON [Concomitant]
  20. MAGIC MOUTHWASH [Concomitant]
  21. ATIVAN [Concomitant]
  22. DURAGESIC PATCH [Concomitant]

REACTIONS (4)
  - Myocardial infarction [Fatal]
  - Sinus arrhythmia [Fatal]
  - Dilatation atrial [Unknown]
  - Treatment noncompliance [Unknown]
